FAERS Safety Report 11516344 (Version 4)
Quarter: 2016Q2

REPORT INFORMATION
  Report Type: Spontaneous
  Country: FI (occurrence: FI)
  Receive Date: 20150917
  Receipt Date: 20160404
  Transmission Date: 20160815
  Serious: Yes (Death, Hospitalization, Other)
  Sender: FDA-Public Use
  Company Number: FI-ROCHE-1631593

PATIENT
  Age: 69 Year
  Sex: Male
  Weight: 105 kg

DRUGS (13)
  1. ROSUVASTATIN ACTAVIS [Concomitant]
     Indication: HYPERCHOLESTEROLAEMIA
     Route: 048
     Dates: end: 20150820
  2. KLEXANE [Concomitant]
     Active Substance: ENOXAPARIN
     Indication: ANTICOAGULANT THERAPY
     Route: 058
     Dates: end: 20150819
  3. FURESIS COMP [Concomitant]
     Indication: POLYURIA
     Dosage: 40/50 MG
     Route: 048
     Dates: end: 20150820
  4. ISOPTIN [Concomitant]
     Active Substance: VERAPAMIL HYDROCHLORIDE
     Indication: ATRIAL FLUTTER
     Route: 048
     Dates: end: 20150820
  5. DIGOXIN. [Concomitant]
     Active Substance: DIGOXIN
     Route: 048
  6. MAREVAN [Concomitant]
     Active Substance: WARFARIN SODIUM
     Indication: ATRIAL FLUTTER
     Route: 065
     Dates: end: 201404
  7. RAMIPRIL HEXAL [Concomitant]
     Active Substance: RAMIPRIL
     Route: 048
     Dates: end: 20150818
  8. KLEXANE [Concomitant]
     Active Substance: ENOXAPARIN
     Indication: ATRIAL FLUTTER
  9. XELODA [Suspect]
     Active Substance: CAPECITABINE
     Indication: COLON CANCER
     Route: 048
     Dates: start: 20150810
  10. XELODA [Suspect]
     Active Substance: CAPECITABINE
     Dosage: UNSPECIFIED DOSE REDUCTION
     Route: 048
     Dates: end: 20150817
  11. DIFORMIN RETARD [Concomitant]
     Active Substance: METFORMIN HYDROCHLORIDE
     Indication: DIABETES MELLITUS
     Route: 048
     Dates: end: 20150819
  12. PANADOL FORTE [Concomitant]
     Active Substance: ACETAMINOPHEN\CAFFEINE
     Dosage: 2-3 TIMES PER DAY AS NEEDED
     Route: 048
  13. DIFLUCAN [Concomitant]
     Active Substance: FLUCONAZOLE
     Route: 065

REACTIONS (12)
  - Multiple organ dysfunction syndrome [Fatal]
  - Bundle branch block left [Unknown]
  - Toxicity to various agents [Fatal]
  - Dihydropyrimidine dehydrogenase deficiency [Fatal]
  - Acute kidney injury [Unknown]
  - Sepsis [Unknown]
  - Disseminated intravascular coagulation [Unknown]
  - Neutropenia [Unknown]
  - Neutropenic sepsis [Fatal]
  - General physical health deterioration [Unknown]
  - Atrial fibrillation [Unknown]
  - Pneumonia [Unknown]

NARRATIVE: CASE EVENT DATE: 20150812
